FAERS Safety Report 16196983 (Version 2)
Quarter: 2019Q2

REPORT INFORMATION
  Report Type: Spontaneous
  Country: US (occurrence: US)
  Receive Date: 20190415
  Receipt Date: 20190506
  Transmission Date: 20190711
  Serious: Yes (Hospitalization)
  Sender: FDA-Public Use
  Company Number: US-PFIZER INC-2019148797

PATIENT
  Age: 81 Year
  Sex: Male

DRUGS (13)
  1. MULTAQ [Concomitant]
     Active Substance: DRONEDARONE
     Dosage: 400 MG, 2X/DAY (MORNING WITH BREAKFAST ABOUT 5AM)/ (DINNER TIME AT 5PM)
  2. OMEGA-3 FATTY ACIDS [Concomitant]
     Active Substance: OMEGA-3 FATTY ACIDS
     Dosage: UNK, 2X/DAY (MORNING WITH BREAKFAST ABOUT 5AM/ DINNER TIME AT 5PM)
  3. ASPIRIN [ACETYLSALICYLIC ACID] [Concomitant]
     Active Substance: ASPIRIN
     Dosage: 81 MG, 1X/DAY (MORNING WITH BREAKFAST ABOUT 5AM)
  4. CHLORTHALIDONE. [Concomitant]
     Active Substance: CHLORTHALIDONE
     Dosage: 12.5 MG, 2X/DAY (MORNING WITH BREAKFAST ABOUT 5AM / BEFORE BED 10PM)
  5. LIPITOR [Suspect]
     Active Substance: ATORVASTATIN CALCIUM
     Indication: BLOOD CHOLESTEROL INCREASED
  6. ELIQUIS [Concomitant]
     Active Substance: APIXABAN
     Dosage: 5 MG, 2X/DAY (MORNING WITH BREAKFAST ABOUT 5AM / DINNER TIME AT 5PM)
  7. BENADRYL [Concomitant]
     Active Substance: DIPHENHYDRAMINE HYDROCHLORIDE
     Dosage: UNK, 1X/DAY (BEFORE BED 10PM)
  8. NORVASC [Concomitant]
     Active Substance: AMLODIPINE BESYLATE
     Dosage: 7.5 MG, 1X/DAY (DINNER TIME AT 5PM)
  9. CYCLOBENZAPRINE. [Concomitant]
     Active Substance: CYCLOBENZAPRINE
     Dosage: 10 MG, 1X/DAY (BEFORE BED 10PM)
  10. LIPITOR [Suspect]
     Active Substance: ATORVASTATIN CALCIUM
     Indication: CARDIAC DISORDER
     Dosage: 20 MG, 1X/DAY (AT NIGHT; AROUND 5PM-6PM)
     Dates: end: 20190419
  11. IMDUR [Concomitant]
     Active Substance: ISOSORBIDE MONONITRATE
     Dosage: 60 MG, 1X/DAY (MORNING WITH BREAKFAST ABOUT 5AM)
  12. TYLENOL [Concomitant]
     Active Substance: ACETAMINOPHEN
     Dosage: 325 MG, 1X/DAY (9 AM LATER IN MORNING/BEFORE BED 10PM)
  13. MELATONIN [Concomitant]
     Active Substance: MELATONIN
     Dosage: 3 MG, 1X/DAY (BEFORE BED 10PM)

REACTIONS (5)
  - Muscle spasms [Not Recovered/Not Resolved]
  - Myalgia [Not Recovered/Not Resolved]
  - Insomnia [Not Recovered/Not Resolved]
  - Blood creatinine increased [Recovered/Resolved]
  - Loss of personal independence in daily activities [Recovering/Resolving]
